FAERS Safety Report 15284495 (Version 1)
Quarter: 2018Q3

REPORT INFORMATION
  Report Type: Spontaneous
  Country: US (occurrence: US)
  Receive Date: 20180801
  Receipt Date: 20180801
  Transmission Date: 20181010
  Serious: Yes (Other)
  Sender: FDA-Public Use
  Company Number: None

PATIENT
  Age: 41 Year
  Sex: Female
  Weight: 86.09 kg

DRUGS (1)
  1. ATOMOXETINE 100MG [Suspect]
     Active Substance: ATOMOXETINE
     Indication: ATTENTION DEFICIT/HYPERACTIVITY DISORDER
     Dates: start: 20180203

REACTIONS (3)
  - Product substitution issue [None]
  - Disturbance in attention [None]
  - Poor quality sleep [None]

NARRATIVE: CASE EVENT DATE: 20180720
